FAERS Safety Report 18397230 (Version 2)
Quarter: 2020Q4

REPORT INFORMATION
  Report Type: Report from Study
  Country: TR (occurrence: TR)
  Receive Date: 20201019
  Receipt Date: 20201029
  Transmission Date: 20210114
  Serious: Yes (Death)
  Sender: FDA-Public Use
  Company Number: TR-PFIZER INC-2020400631

PATIENT

DRUGS (4)
  1. OXALIPLATIN. [Suspect]
     Active Substance: OXALIPLATIN
     Indication: GASTRIC CANCER
     Dosage: 85 MG/M2, CYCLIC (ONCE EVERY TWO-WEEK,ON DAY 1)
     Route: 042
  2. DOCETAXEL. [Suspect]
     Active Substance: DOCETAXEL
     Indication: GASTRIC CANCER
     Dosage: 50 MG/M2, CYCLIC (ONCE EVERY TWO-WEEK,ON DAY 1)
     Route: 042
  3. CALCIUM FOLINATE [Suspect]
     Active Substance: LEUCOVORIN CALCIUM
     Indication: GASTRIC CANCER
     Dosage: 200 MG/M2, CYCLIC (ONCE EVERY TWO-WEEK,ON DAY 1)
     Route: 042
  4. 5 FLUORO URACIL [Suspect]
     Active Substance: FLUOROURACIL
     Indication: GASTRIC CANCER
     Dosage: 2600 MG/M2, CYCLIC (ONCE EVERY TWO-WEEK, 48 H INFUSION ON DAY 1-2)

REACTIONS (1)
  - Death [Fatal]
